FAERS Safety Report 24551906 (Version 1)
Quarter: 2024Q4

REPORT INFORMATION
  Report Type: Spontaneous
  Country: ES (occurrence: ES)
  Receive Date: 20241026
  Receipt Date: 20241026
  Transmission Date: 20250115
  Serious: Yes (Other)
  Sender: AUROBINDO
  Company Number: ES-UCBSA-2021007083

PATIENT
  Age: 3 Year
  Sex: Female
  Weight: 13.9 kg

DRUGS (6)
  1. LEVETIRACETAM [Suspect]
     Active Substance: LEVETIRACETAM
     Indication: Oculocephalogyric reflex absent
     Dosage: UNK
     Route: 065
  2. LEVETIRACETAM [Suspect]
     Active Substance: LEVETIRACETAM
     Indication: Hypertonia
  3. LEVETIRACETAM [Suspect]
     Active Substance: LEVETIRACETAM
     Indication: Dystonia
  4. VALPROIC ACID [Suspect]
     Active Substance: VALPROIC ACID
     Indication: Oculocephalogyric reflex absent
     Dosage: UNK
     Route: 065
  5. VALPROIC ACID [Suspect]
     Active Substance: VALPROIC ACID
     Indication: Hypertonia
  6. VALPROIC ACID [Suspect]
     Active Substance: VALPROIC ACID
     Indication: Dystonia

REACTIONS (3)
  - Disease progression [Unknown]
  - Product use in unapproved indication [Unknown]
  - Drug ineffective for unapproved indication [Unknown]
